FAERS Safety Report 24706459 (Version 3)
Quarter: 2025Q4

REPORT INFORMATION
  Report Type: Spontaneous
  Country: US (occurrence: US)
  Receive Date: 20241206
  Receipt Date: 20251007
  Transmission Date: 20260117
  Serious: Yes (Hospitalization, Other)
  Sender: SANOFI AVENTIS
  Company Number: US-SA-2024SA359646

PATIENT
  Age: 77 Year
  Sex: Female

DRUGS (5)
  1. DUPIXENT [Suspect]
     Active Substance: DUPILUMAB
     Indication: Asthma
     Dosage: 400 MG, 1X
     Route: 058
     Dates: start: 20241011, end: 20241011
  2. DUPIXENT [Suspect]
     Active Substance: DUPILUMAB
     Dosage: 200 MG, QOW
     Route: 058
     Dates: start: 202410
  3. PREDNISONE [Suspect]
     Active Substance: PREDNISONE
     Indication: Asthma
     Dosage: 10 MG
  4. PREDNISONE [Suspect]
     Active Substance: PREDNISONE
     Dosage: 2.5 MG
     Dates: start: 202506, end: 2025
  5. PREDNISONE [Suspect]
     Active Substance: PREDNISONE
     Dosage: 5 MG
     Dates: start: 2025

REACTIONS (13)
  - Pneumonia [Recovered/Resolved]
  - Bronchiolitis [Recovered/Resolved]
  - Pleurisy [Recovered/Resolved]
  - Illness [Unknown]
  - Dyspnoea [Unknown]
  - Bronchitis [Not Recovered/Not Resolved]
  - Cough [Not Recovered/Not Resolved]
  - Productive cough [Not Recovered/Not Resolved]
  - Nasal congestion [Not Recovered/Not Resolved]
  - Dyspnoea [Not Recovered/Not Resolved]
  - Asthma [Recovering/Resolving]
  - Productive cough [Recovering/Resolving]
  - Drug ineffective [Unknown]

NARRATIVE: CASE EVENT DATE: 20241117
